FAERS Safety Report 10362799 (Version 1)
Quarter: 2014Q3

REPORT INFORMATION
  Report Type: Spontaneous
  Country: US (occurrence: US)
  Receive Date: 20140805
  Receipt Date: 20140805
  Transmission Date: 20150326
  Serious: No
  Sender: FDA-Public Use
  Company Number: US-B.I. PHARMACEUTICALS,INC./RIDGEFIELD-2014-BI-34816BP

PATIENT
  Age: 66 Year
  Sex: Male
  Weight: 100 kg

DRUGS (5)
  1. SPIRIVA [Suspect]
     Active Substance: TIOTROPIUM BROMIDE MONOHYDRATE
     Indication: CHRONIC OBSTRUCTIVE PULMONARY DISEASE
     Dosage: 18 MCG
     Route: 055
     Dates: start: 201304
  2. LOVASTATIN. [Concomitant]
     Active Substance: LOVASTATIN
     Indication: MYOCARDIAL INFARCTION
     Dosage: 1 ANZ
     Route: 048
     Dates: start: 2007
  3. ASPIRIN. [Concomitant]
     Active Substance: ASPIRIN
     Indication: MYOCARDIAL INFARCTION
     Dosage: 81 MG
     Route: 048
     Dates: start: 2007
  4. ACCUPRIL [Concomitant]
     Active Substance: QUINAPRIL HYDROCHLORIDE
     Indication: MYOCARDIAL INFARCTION
     Dosage: 1 ANZ
     Route: 048
     Dates: start: 2007
  5. SINUS MEDICATION [Concomitant]
     Active Substance: UNSPECIFIED INGREDIENT
     Indication: SINUS DISORDER
     Dosage: 1 ANZ
     Route: 048

REACTIONS (1)
  - Dysgeusia [Not Recovered/Not Resolved]

NARRATIVE: CASE EVENT DATE: 201304
